FAERS Safety Report 9849074 (Version 1)
Quarter: 2013Q4

REPORT INFORMATION
  Report Type: Spontaneous
  Country: US (occurrence: None)
  Receive Date: 20131224
  Receipt Date: 20131224
  Transmission Date: 20140711
  Serious: Yes (Hospitalization)
  Sender: FDA-Public Use
  Company Number: PHEH2013US008854

PATIENT
  Age: 57 Year
  Sex: Male

DRUGS (1)
  1. MYFORTIC (MYCOPHENOLIC ACID) TABLET [Suspect]
     Route: 048

REACTIONS (5)
  - Pneumonia [None]
  - Malaise [None]
  - Cough [None]
  - Eating disorder [None]
  - Asthenia [None]
